FAERS Safety Report 17039419 (Version 2)
Quarter: 2019Q4

REPORT INFORMATION
  Report Type: Spontaneous
  Country: US (occurrence: US)
  Receive Date: 20191115
  Receipt Date: 20191227
  Transmission Date: 20200122
  Serious: No
  Sender: FDA-Public Use
  Company Number: US-SA-2019SA318932

PATIENT
  Age: 41 Year
  Sex: Male

DRUGS (1)
  1. LANTUS SOLOSTAR [Suspect]
     Active Substance: INSULIN GLARGINE
     Indication: TYPE 1 DIABETES MELLITUS
     Dosage: 7UNITSAM, 11 UNITS IN PM
     Route: 065

REACTIONS (3)
  - Inappropriate schedule of product administration [Unknown]
  - Blood glucose increased [Unknown]
  - Device issue [Unknown]
